FAERS Safety Report 5607961-3 (Version None)
Quarter: 2008Q1

REPORT INFORMATION
  Report Type: 
  Country: None (occurrence: None)
  Receive Date: 20080130
  Receipt Date: 20080126
  Transmission Date: 20080703
  Serious: Yes (Hospitalization)
  Sender: FDA-Public Use
  Company Number: A0694563A

PATIENT
  Age: 65 Year
  Sex: Female
  Weight: 121.1 kg

DRUGS (2)
  1. AVANDAMET [Suspect]
     Route: 048
     Dates: start: 20070222
  2. METOPROLOL TARTRATE [Concomitant]
     Dosage: 25MG TWICE PER DAY
     Route: 048

REACTIONS (5)
  - ATRIAL FIBRILLATION [None]
  - DIZZINESS [None]
  - HYPOAESTHESIA [None]
  - ISCHAEMIC STROKE [None]
  - PAIN [None]
